FAERS Safety Report 24686890 (Version 1)
Quarter: 2024Q4

REPORT INFORMATION
  Report Type: Spontaneous
  Country: US (occurrence: None)
  Receive Date: 20241130
  Receipt Date: 20241130
  Transmission Date: 20250115
  Serious: No
  Sender: Public
  Company Number: None

PATIENT
  Age: 6 Year
  Sex: Female
  Weight: 22.5 kg

DRUGS (1)
  1. AZITHROMYCIN [Suspect]
     Active Substance: AZITHROMYCIN
     Indication: Respiratory tract infection
     Dosage: OTHER QUANTITY : 4.5 ML;?FREQUENCY : EVERY 12 HOURS;?
     Route: 048
     Dates: start: 20241107, end: 20241111

REACTIONS (1)
  - Urticaria [None]

NARRATIVE: CASE EVENT DATE: 20241108
